FAERS Safety Report 14900444 (Version 1)
Quarter: 2018Q2

REPORT INFORMATION
  Report Type: Spontaneous
  Country: US (occurrence: US)
  Receive Date: 20180516
  Receipt Date: 20180516
  Transmission Date: 20180711
  Serious: No
  Sender: FDA-Public Use
  Company Number: US-MYLANLABS-2018M1004037

PATIENT
  Sex: Female

DRUGS (1)
  1. FENTANYL MYLAN [Suspect]
     Active Substance: FENTANYL
     Indication: PAIN
     Dosage: 200 ?G, Q2D
     Route: 062

REACTIONS (1)
  - Drug tolerance [Unknown]
